FAERS Safety Report 12886983 (Version 1)
Quarter: 2016Q4

REPORT INFORMATION
  Report Type: Spontaneous
  Country: US (occurrence: US)
  Receive Date: 20161026
  Receipt Date: 20161026
  Transmission Date: 20170207
  Serious: No
  Sender: FDA-Public Use
  Company Number: US-PERRIGO-15US011629

PATIENT
  Age: 45 Year
  Sex: Female
  Weight: 53.52 kg

DRUGS (1)
  1. NICOTINE POLACRILEX [Suspect]
     Active Substance: NICOTINE
     Indication: SMOKING CESSATION THERAPY
     Dosage: 4 MG, EVERY 2 HOURS
     Route: 002
     Dates: start: 20151028, end: 20151031

REACTIONS (1)
  - Tooth discolouration [Not Recovered/Not Resolved]

NARRATIVE: CASE EVENT DATE: 20151030
